FAERS Safety Report 14837470 (Version 1)
Quarter: 2018Q2

REPORT INFORMATION
  Report Type: Spontaneous
  Country: RS (occurrence: RS)
  Receive Date: 20180502
  Receipt Date: 20180502
  Transmission Date: 20180711
  Serious: Yes (Hospitalization, Other)
  Sender: FDA-Public Use
  Company Number: RS-ABBVIE-18K-303-2334999-00

PATIENT
  Age: 55 Year
  Sex: Male

DRUGS (3)
  1. HUMIRA [Suspect]
     Active Substance: ADALIMUMAB
     Indication: CROHN^S DISEASE
     Route: 058
  2. INSULIN [Concomitant]
     Active Substance: INSULIN NOS
     Indication: DIABETES MELLITUS
  3. REMICADE [Suspect]
     Active Substance: INFLIXIMAB
     Indication: CROHN^S DISEASE
     Route: 065
     Dates: start: 2016

REACTIONS (17)
  - Lumbar vertebral fracture [Unknown]
  - Drug ineffective [Unknown]
  - Diarrhoea [Unknown]
  - Weight decreased [Unknown]
  - Blood selenium abnormal [Unknown]
  - Hepatic steatosis [Unknown]
  - Osteoarthritis [Unknown]
  - Systemic lupus erythematosus disease activity index abnormal [Unknown]
  - Intestinal ulcer [Unknown]
  - Intestinal haemorrhage [Unknown]
  - Crohn^s disease [Not Recovered/Not Resolved]
  - Drug ineffective [Unknown]
  - Osteopenia [Unknown]
  - Intestinal polyp [Unknown]
  - Thoracic vertebral fracture [Unknown]
  - Cytomegalovirus colitis [Unknown]
  - Asthenia [Unknown]

NARRATIVE: CASE EVENT DATE: 2016
